FAERS Safety Report 21137596 (Version 1)
Quarter: 2022Q3

REPORT INFORMATION
  Report Type: Spontaneous
  Country: US (occurrence: None)
  Receive Date: 20220727
  Receipt Date: 20220727
  Transmission Date: 20221027
  Serious: Yes (Life-Threatening, Hospitalization, Disabling, Other)
  Sender: FDA-Public Use
  Company Number: None

PATIENT
  Sex: Female
  Weight: 48735 kg

DRUGS (1)
  1. HALDOL [Suspect]
     Active Substance: HALOPERIDOL
     Indication: Therapy change

REACTIONS (6)
  - Dyskinesia [None]
  - Tongue movement disturbance [None]
  - Nonspecific reaction [None]
  - Hypersensitivity [None]
  - Muscle tightness [None]
  - Discomfort [None]
